FAERS Safety Report 21510037 (Version 1)
Quarter: 2022Q4

REPORT INFORMATION
  Report Type: Spontaneous
  Country: US (occurrence: US)
  Receive Date: 20221026
  Receipt Date: 20221026
  Transmission Date: 20230113
  Serious: No
  Sender: FDA-Public Use
  Company Number: US-ORGANON-O2210USA001085

PATIENT
  Sex: Female

DRUGS (2)
  1. SINEMET [Suspect]
     Active Substance: CARBIDOPA\LEVODOPA
     Indication: Tremor
     Dosage: UNK
     Route: 048
  2. SINEMET [Suspect]
     Active Substance: CARBIDOPA\LEVODOPA
     Dosage: UNK; DOSE INCREASED
     Route: 048

REACTIONS (2)
  - Tremor [Unknown]
  - Confusional state [Unknown]
